FAERS Safety Report 4750043-3 (Version None)
Quarter: 2005Q3

REPORT INFORMATION
  Report Type: 
  Country: None (occurrence: None)
  Receive Date: 20050822
  Receipt Date: 20050805
  Transmission Date: 20060218
  Serious: Yes (Hospitalization)
  Sender: FDA-Public Use
  Company Number: DEU-2005-0001633

PATIENT
  Age: 64 Year
  Sex: Female
  Weight: 31.7518 kg

DRUGS (10)
  1. OXY CR TAB 10 MG (OXY TAB 10 MG) OXYCODONE HYDROCHLORIDE) CR TABLET [Suspect]
     Indication: PAIN
     Dosage: SEE IMAGE
     Route: 048
     Dates: start: 20050405, end: 20050413
  2. OXY CR TAB 10 MG (OXY TAB 10 MG) OXYCODONE HYDROCHLORIDE) CR TABLET [Suspect]
     Indication: PAIN
     Dosage: SEE IMAGE
     Route: 048
     Dates: start: 20050414, end: 20050624
  3. DIPYRONE TAB [Concomitant]
  4. ANTIEPILEPTICS [Concomitant]
  5. CAPTOPRIL [Concomitant]
  6. ZOPICLONE (ZOPICLONE) [Concomitant]
  7. BISOPROLOL (BISOPROLOL) [Concomitant]
  8. DESLORATADINE (DESLORATADINE) [Concomitant]
  9. METOCLOPRAMIDE [Concomitant]
  10. LEVODOPA BENSERAZIDE HYDROCHLO(LEVODOPA, BENSERAZIDE HYDROCHLORIEE) [Concomitant]

REACTIONS (1)
  - HOSPITALISATION [None]
